FAERS Safety Report 6651905-2 (Version None)
Quarter: 2010Q1

REPORT INFORMATION
  Report Type: 
  Country: None (occurrence: None)
  Receive Date: 20100325
  Receipt Date: 20100315
  Transmission Date: 20100710
  Serious: Yes (Other)
  Sender: FDA-Public Use
  Company Number: US-SANOFI-AVENTIS-2010SA015308

PATIENT
  Age: 80 Year
  Sex: Male

DRUGS (2)
  1. AMBIEN [Suspect]
     Indication: SLEEP DISORDER
     Route: 048
  2. INSULIN [Concomitant]

REACTIONS (2)
  - FALL [None]
  - PARALYSIS [None]
